FAERS Safety Report 13864924 (Version 2)
Quarter: 2017Q3

REPORT INFORMATION
  Report Type: Spontaneous
  Country: US (occurrence: US)
  Receive Date: 20170814
  Receipt Date: 20170816
  Transmission Date: 20171127
  Serious: No
  Sender: FDA-Public Use
  Company Number: US-B.I. PHARMACEUTICALS,INC./RIDGEFIELD-2017-BI-044165

PATIENT
  Age: 77 Year
  Sex: Female

DRUGS (5)
  1. IPRATROPIUM BROMIDE / ALBUTEROL [Concomitant]
     Indication: WHEEZING
  2. VENTOLIN [Concomitant]
     Active Substance: ALBUTEROL SULFATE
     Indication: DYSPNOEA
  3. VENTOLIN [Concomitant]
     Active Substance: ALBUTEROL SULFATE
     Indication: WHEEZING
     Dosage: 2 PUFFS EVERY 4 HOURS AS NEEDED;
     Route: 065
     Dates: start: 20170803
  4. IPRATROPIUM BROMIDE / ALBUTEROL [Concomitant]
     Indication: DYSPNOEA
     Dosage: 1 VIAL VIA NEBULIZER MACHINE EVERY 4 HOURS AS NEED;  FORM STRENGTH: 0.5MG/3MG; FORMULATION: INHALATI
     Route: 055
     Dates: start: 201707
  5. STIOLTO RESPIMAT [Suspect]
     Active Substance: OLODATEROL HYDROCHLORIDE\TIOTROPIUM BROMIDE MONOHYDRATE
     Indication: CHRONIC OBSTRUCTIVE PULMONARY DISEASE
     Dosage: 2 PUFFS ONCE A DAY;  FORM STRENGTH: 2.5 MCG; FORMULATION: INHALATION SPRAY? ADMINISTRATION CORRECT?
     Route: 055
     Dates: start: 20170622

REACTIONS (3)
  - Diarrhoea [Recovered/Resolved]
  - Abdominal pain upper [Recovered/Resolved]
  - Abdominal pain upper [Recovered/Resolved]

NARRATIVE: CASE EVENT DATE: 20170807
